FAERS Safety Report 19501680 (Version 2)
Quarter: 2021Q3

REPORT INFORMATION
  Report Type: Report from Study
  Country: AT (occurrence: AT)
  Receive Date: 20210707
  Receipt Date: 20210926
  Transmission Date: 20211014
  Serious: Yes (Hospitalization, Other)
  Sender: FDA-Public Use
  Company Number: AT-SA-2020SA195386

PATIENT
  Age: 25 Year
  Sex: Female

DRUGS (4)
  1. ALEMTUZUMAB [Suspect]
     Active Substance: ALEMTUZUMAB
     Indication: MULTIPLE SCLEROSIS
     Dosage: UNK
     Route: 041
     Dates: start: 20090105
  2. ALEMTUZUMAB [Suspect]
     Active Substance: ALEMTUZUMAB
     Dosage: 12 MG
     Route: 042
     Dates: start: 20170329, end: 20170402
  3. ALEMTUZUMAB [Suspect]
     Active Substance: ALEMTUZUMAB
     Dosage: 12 MG
     Route: 042
     Dates: start: 20180316, end: 20180318
  4. DIPHENHYDRAMINE HYDROCHLORIDE. [Suspect]
     Active Substance: DIPHENHYDRAMINE HYDROCHLORIDE
     Route: 065

REACTIONS (14)
  - Thyroid function test abnormal [Recovered/Resolved]
  - Thrombocytopenia [Recovered/Resolved]
  - Urticaria [Recovering/Resolving]
  - Herpes zoster [Recovered/Resolved]
  - Petechiae [Unknown]
  - Drug hypersensitivity [Recovering/Resolving]
  - Hypothyroidism [Recovering/Resolving]
  - Endocrine disorder [Not Recovered/Not Resolved]
  - Lymphopenia [Recovered/Resolved]
  - Haematoma [Unknown]
  - Autoimmune thyroiditis [Not Recovered/Not Resolved]
  - Thyroxine free decreased [Recovered/Resolved]
  - Blood thyroid stimulating hormone increased [Recovered/Resolved]
  - Infection parasitic [Recovered/Resolved]

NARRATIVE: CASE EVENT DATE: 20170403
